FAERS Safety Report 24689037 (Version 1)
Quarter: 2024Q4

REPORT INFORMATION
  Report Type: Spontaneous
  Country: FR (occurrence: FR)
  Receive Date: 20241203
  Receipt Date: 20241203
  Transmission Date: 20250115
  Serious: Yes (Hospitalization, Other)
  Sender: BAXTER
  Company Number: None

PATIENT
  Age: 75 Year
  Sex: Female
  Weight: 64.8 kg

DRUGS (3)
  1. MESNA [Suspect]
     Active Substance: MESNA
     Indication: Small cell lung cancer
     Dosage: 400 MG
     Route: 042
     Dates: start: 20240812, end: 20240812
  2. CYCLOPHOSPHAMIDE [Suspect]
     Active Substance: CYCLOPHOSPHAMIDE
     Indication: Small cell lung cancer
     Dosage: UNK
     Route: 042
  3. CEFOTAXIME SODIUM [Concomitant]
     Active Substance: CEFOTAXIME SODIUM
     Dosage: UNK
     Route: 065

REACTIONS (1)
  - Altered state of consciousness [Recovering/Resolving]

NARRATIVE: CASE EVENT DATE: 20240812
